FAERS Safety Report 10963761 (Version 2)
Quarter: 2015Q2

REPORT INFORMATION
  Report Type: Report from Study
  Country: IT (occurrence: IT)
  Receive Date: 20150328
  Receipt Date: 20150519
  Transmission Date: 20150821
  Serious: Yes (Other)
  Sender: FDA-Public Use
  Company Number: IT-MERCK-1503ITA011811

PATIENT
  Age: 65 Year
  Sex: Female
  Weight: 62 kg

DRUGS (3)
  1. DASABUVIR [Suspect]
     Active Substance: DASABUVIR
     Indication: GLOMERULONEPHRITIS PROLIFERATIVE
     Dosage: 2 DF (UNIT), QD
     Route: 048
     Dates: start: 20150316, end: 20150320
  2. OMBITASVIR [Suspect]
     Active Substance: OMBITASVIR
     Indication: GLOMERULONEPHRITIS PROLIFERATIVE
     Dosage: 2 DF (UNIT), QD
     Route: 048
     Dates: start: 20150316, end: 20150320
  3. RIBAVIRIN. [Suspect]
     Active Substance: RIBAVIRIN
     Indication: GLOMERULONEPHRITIS PROLIFERATIVE
     Dosage: 400 MG, QD
     Route: 048
     Dates: start: 20150316, end: 20150320

REACTIONS (4)
  - Hypotension [Recovered/Resolved]
  - Dyspnoea [Recovered/Resolved]
  - Oedema [Recovered/Resolved]
  - Sense of oppression [Recovered/Resolved]

NARRATIVE: CASE EVENT DATE: 20150320
